FAERS Safety Report 24658568 (Version 1)
Quarter: 2024Q4

REPORT INFORMATION
  Report Type: Spontaneous
  Country: US (occurrence: US)
  Receive Date: 20241125
  Receipt Date: 20241125
  Transmission Date: 20250115
  Serious: Yes (Hospitalization)
  Sender: MYLAN
  Company Number: US-MYLANLABS-2024M1103829

PATIENT
  Age: 29 Year
  Sex: Female

DRUGS (3)
  1. FENTANYL [Suspect]
     Active Substance: FENTANYL
     Indication: Product used for unknown indication
     Dosage: UNK
     Route: 065
  2. BUPRENORPHINE [Suspect]
     Active Substance: BUPRENORPHINE
     Indication: Drug use disorder
     Dosage: 32 MILLIGRAM
     Route: 060
  3. BUPRENORPHINE [Suspect]
     Active Substance: BUPRENORPHINE
     Dosage: 8 MILLIGRAM, BID
     Route: 060

REACTIONS (3)
  - Drug abuse [Unknown]
  - Drug use disorder [Unknown]
  - Maternal exposure during pregnancy [Unknown]
